FAERS Safety Report 10459830 (Version 5)
Quarter: 2014Q4

REPORT INFORMATION
  Report Type: Report from Study
  Country: DE (occurrence: DE)
  Receive Date: 20140917
  Receipt Date: 20141023
  Transmission Date: 20150528
  Serious: Yes (Hospitalization)
  Sender: FDA-Public Use
  Company Number: DE-009507513-1409DEU005706

PATIENT
  Age: 42 Year
  Sex: Female

DRUGS (10)
  1. CLEXANE (ENOXAPARIN SODIUM) [Concomitant]
     Active Substance: ENOXAPARIN SODIUM
     Dosage: DOSE 0.4 UNITS UNKNOWN
     Route: 058
     Dates: start: 2013
  2. BUPRENORPHINE [Suspect]
     Active Substance: BUPRENORPHINE
     Indication: PAIN
     Dosage: INTERMITTENT
     Route: 048
     Dates: start: 201407, end: 20140905
  3. BUPRENORPHINE HCL [Suspect]
     Active Substance: BUPRENORPHINE HYDROCHLORIDE
     Indication: PAIN
     Dosage: STRENGTH: 35 MICROGRAM/HOUR
     Route: 062
     Dates: start: 201407, end: 20140905
  4. NOVALGIN (ACETAMINOPHEN (+) CAFFEINE (+) PROPYPHENAZONE) [Concomitant]
     Indication: PAIN
     Dosage: FREQUENCY: 6X/DAY TOTAL DAILY DOSE: 3000MG
     Route: 048
     Dates: start: 201407
  5. LYRICA [Suspect]
     Active Substance: PREGABALIN
     Indication: PAIN
     Dosage: FREQUENCY: 2-2-2, TOTAL DIALY DOSE 300MG
     Route: 048
     Dates: start: 201407
  6. OFLOXACIN. [Concomitant]
     Active Substance: OFLOXACIN
     Indication: GENITAL INFECTION
     Dosage: 100 MG, FREQUENCY 1-0-1
  7. PEMBROLIZUMAB. [Suspect]
     Active Substance: PEMBROLIZUMAB
     Indication: METASTATIC MALIGNANT MELANOMA
     Dosage: Q3W; STRENGTH: 115 MG, , TOTAL DAILY DOSE 115MG
     Route: 042
     Dates: start: 20140612
  8. PEMBROLIZUMAB. [Suspect]
     Active Substance: PEMBROLIZUMAB
     Dosage: Q3W; STRENGTH: 115 MG, TOTAL DAILY DOSE 115MG
     Route: 042
     Dates: start: 20140908
  9. PEMBROLIZUMAB. [Suspect]
     Active Substance: PEMBROLIZUMAB
     Dosage: UNK
     Route: 042
     Dates: start: 20141016
  10. LYRICA [Suspect]
     Active Substance: PREGABALIN
     Dosage: FREQUENCY: 1-1-1
     Route: 048
     Dates: start: 20141013

REACTIONS (1)
  - Myoclonus [Not Recovered/Not Resolved]

NARRATIVE: CASE EVENT DATE: 20140821
